FAERS Safety Report 5702675-3 (Version None)
Quarter: 2008Q2

REPORT INFORMATION
  Report Type: 
  Country: None (occurrence: None)
  Receive Date: 20080410
  Receipt Date: 20080410
  Transmission Date: 20081010
  Serious: Yes (Other)
  Sender: FDA-Public Use
  Company Number: None

PATIENT
  Age: 7 Year
  Sex: Female
  Weight: 20.4119 kg

DRUGS (1)
  1. SINGULAIR [Suspect]
     Indication: ASTHMA
     Dosage: 4 MG  1 TIME/DAY PO
     Route: 048
     Dates: start: 20041229, end: 20080403

REACTIONS (6)
  - ANXIETY [None]
  - FEAR [None]
  - MOOD SWINGS [None]
  - NIGHTMARE [None]
  - PSYCHIATRIC SYMPTOM [None]
  - SLEEP DISORDER [None]
